FAERS Safety Report 18286687 (Version 3)
Quarter: 2020Q3

REPORT INFORMATION
  Report Type: Spontaneous
  Country: DE (occurrence: DE)
  Receive Date: 20200921
  Receipt Date: 20200930
  Transmission Date: 20201103
  Serious: Yes (Hospitalization, Other)
  Sender: FDA-Public Use
  Company Number: DE-ABBVIE-20K-062-3567794-00

PATIENT
  Age: 51 Year
  Sex: Male

DRUGS (7)
  1. RINVOQ [Suspect]
     Active Substance: UPADACITINIB
     Indication: ANKYLOSING SPONDYLITIS
  2. CLOPIDOGREL [Concomitant]
     Active Substance: CLOPIDOGREL BISULFATE
     Indication: PRODUCT USED FOR UNKNOWN INDICATION
  3. PREDNISOLON [Concomitant]
     Active Substance: PREDNISOLONE
     Indication: PRODUCT USED FOR UNKNOWN INDICATION
  4. VITAMIN D3 [Concomitant]
     Active Substance: CHOLECALCIFEROL
     Indication: PRODUCT USED FOR UNKNOWN INDICATION
  5. ASPIRIN. [Concomitant]
     Active Substance: ASPIRIN
     Indication: PRODUCT USED FOR UNKNOWN INDICATION
  6. RINVOQ [Suspect]
     Active Substance: UPADACITINIB
     Indication: SPONDYLITIS
     Route: 048
     Dates: start: 20200217
  7. L?THYROX [Concomitant]
     Active Substance: LEVOTHYROXINE SODIUM
     Indication: PRODUCT USED FOR UNKNOWN INDICATION

REACTIONS (6)
  - Platelet count increased [Unknown]
  - Off label use [Unknown]
  - Myocardial ischaemia [Unknown]
  - Troponin increased [Unknown]
  - Myocardial infarction [Recovered/Resolved]
  - Blood creatine phosphokinase increased [Unknown]

NARRATIVE: CASE EVENT DATE: 2020
